FAERS Safety Report 22191953 (Version 1)
Quarter: 2023Q2

REPORT INFORMATION
  Report Type: Spontaneous
  Country: US (occurrence: None)
  Receive Date: 20230408
  Receipt Date: 20230408
  Transmission Date: 20230722
  Serious: Yes (Hospitalization, Disabling, Congenital Anomaly, Other)
  Sender: FDA-Public Use
  Company Number: None

PATIENT
  Age: 1 Day
  Sex: Male
  Weight: 2.7 kg

DRUGS (1)
  1. CYTOTEC [Suspect]
     Active Substance: MISOPROSTOL

REACTIONS (4)
  - Forceps delivery [None]
  - Cerebral palsy [None]
  - Drug monitoring procedure incorrectly performed [None]
  - Maternal drugs affecting foetus [None]

NARRATIVE: CASE EVENT DATE: 20131102
